FAERS Safety Report 9462394 (Version 1)
Quarter: 2013Q3

REPORT INFORMATION
  Report Type: Spontaneous
  Country: US (occurrence: None)
  Receive Date: 20130815
  Receipt Date: 20130815
  Transmission Date: 20140515
  Serious: Yes (Hospitalization)
  Sender: FDA-Public Use
  Company Number: None

PATIENT
  Age: 16 Year
  Sex: Female
  Weight: 77 kg

DRUGS (2)
  1. SERTRALINE [Suspect]
  2. PHENELZINE [Suspect]

REACTIONS (4)
  - Wrong drug administered [None]
  - Serotonin syndrome [None]
  - Hallucination [None]
  - Diplopia [None]
